FAERS Safety Report 7632886-1 (Version None)
Quarter: 2011Q3

REPORT INFORMATION
  Report Type: 
  Country: None (occurrence: None)
  Receive Date: 20110725
  Receipt Date: 20110606
  Transmission Date: 20111222
  Serious: Yes (Death, Other)
  Sender: FDA-Public Use
  Company Number: US-BAXTER-2010BH003366

PATIENT
  Age: 56 Year
  Sex: Female

DRUGS (22)
  1. HEPARIN SODIUM INJECTION [Suspect]
     Route: 042
     Dates: start: 20080125, end: 20080128
  2. HEPARIN SODIUM INJECTION [Suspect]
     Route: 065
  3. HEPARIN SODIUM INJECTION [Suspect]
     Route: 040
     Dates: start: 20080114, end: 20080115
  4. HEPARIN SODIUM INJECTION [Suspect]
     Route: 042
     Dates: start: 20080128
  5. HEPARIN SODIUM INJECTION [Suspect]
     Route: 042
     Dates: start: 20080114, end: 20080115
  6. HEPARIN SODIUM INJECTION [Suspect]
     Indication: DIALYSIS
     Route: 042
     Dates: start: 20080112
  7. HEPARIN SODIUM INJECTION [Suspect]
     Route: 040
     Dates: start: 20080117, end: 20080122
  8. HEPARIN SODIUM INJECTION [Suspect]
     Route: 065
  9. HEPARIN SODIUM INJECTION [Suspect]
     Route: 042
     Dates: start: 20080201
  10. HEPARIN SODIUM 1,000 UNITS AND SODIUM CHLORIDE 0.9% [Suspect]
     Route: 065
  11. PROMETHAZINE HYDROCHLORIDE [Concomitant]
     Indication: PRODUCT USED FOR UNKNOWN INDICATION
     Route: 065
  12. DIPRIVAN [Concomitant]
     Indication: PRODUCT USED FOR UNKNOWN INDICATION
     Route: 065
  13. HEPARIN SODIUM INJECTION [Suspect]
     Route: 042
     Dates: start: 20080107
  14. HEPARIN SODIUM INJECTION [Suspect]
     Route: 065
     Dates: start: 20080117, end: 20080122
  15. HEPARIN SODIUM INJECTION [Suspect]
     Route: 040
     Dates: start: 20080201
  16. ACETAMINOPHEN [Concomitant]
     Indication: PRODUCT USED FOR UNKNOWN INDICATION
     Route: 065
  17. ASPIRIN [Concomitant]
     Indication: PRODUCT USED FOR UNKNOWN INDICATION
     Route: 065
  18. PLAVIX [Concomitant]
     Indication: PRODUCT USED FOR UNKNOWN INDICATION
     Route: 065
  19. HEPARIN SODIUM INJECTION [Suspect]
     Route: 042
     Dates: start: 20080123, end: 20080123
  20. HEPARIN SODIUM INJECTION [Suspect]
     Route: 042
     Dates: start: 20080124, end: 20080126
  21. HEPARIN SODIUM 1,000 UNITS AND SODIUM CHLORIDE 0.9% [Suspect]
     Indication: PRODUCT USED FOR UNKNOWN INDICATION
     Route: 041
     Dates: start: 20080123, end: 20080125
  22. LOVENOX [Concomitant]
     Indication: PRODUCT USED FOR UNKNOWN INDICATION
     Route: 065

REACTIONS (18)
  - MENTAL STATUS CHANGES [None]
  - NAUSEA [None]
  - RESPIRATORY FAILURE [None]
  - CHEST PAIN [None]
  - PLEURAL EFFUSION [None]
  - VOMITING [None]
  - RENAL FAILURE [None]
  - CARDIAC FAILURE CONGESTIVE [None]
  - UNRESPONSIVE TO STIMULI [None]
  - DIABETES MELLITUS [None]
  - ATRIAL FIBRILLATION [None]
  - ASTHENIA [None]
  - VENTRICULAR FIBRILLATION [None]
  - DYSPNOEA [None]
  - HYPOTENSION [None]
  - SYNCOPE [None]
  - BRADYCARDIA [None]
  - ABDOMINAL DISTENSION [None]
